FAERS Safety Report 13574607 (Version 2)
Quarter: 2017Q2

REPORT INFORMATION
  Report Type: Spontaneous
  Country: DE (occurrence: DE)
  Receive Date: 20170523
  Receipt Date: 20170630
  Transmission Date: 20170830
  Serious: Yes (Other)
  Sender: FDA-Public Use
  Company Number: PHHY2017DE075298

PATIENT
  Sex: Female

DRUGS (1)
  1. COSENTYX [Suspect]
     Active Substance: SECUKINUMAB
     Indication: PSORIATIC ARTHROPATHY
     Dosage: 150 MG, QW (FOR THREE WEEKS)
     Route: 065
     Dates: start: 2017

REACTIONS (5)
  - Rhinitis [Unknown]
  - Stress [Unknown]
  - Pain [Unknown]
  - Arrhythmia [Unknown]
  - Rhinorrhoea [Unknown]
